FAERS Safety Report 25435101 (Version 1)
Quarter: 2025Q2

REPORT INFORMATION
  Report Type: Spontaneous
  Country: IT (occurrence: IT)
  Receive Date: 20250613
  Receipt Date: 20250613
  Transmission Date: 20250717
  Serious: Yes (Hospitalization, Other)
  Sender: ELI LILLY AND COMPANY
  Company Number: IT-ELI_LILLY_AND_COMPANY-IT202506004733

PATIENT
  Age: 76 Year
  Sex: Female

DRUGS (3)
  1. ABEMACICLIB [Suspect]
     Active Substance: ABEMACICLIB
     Indication: Breast cancer
     Dosage: 150 MG, BID
     Route: 065
     Dates: start: 202301, end: 20250207
  2. ABEMACICLIB [Suspect]
     Active Substance: ABEMACICLIB
     Dosage: 50 MG, BID
     Route: 065
     Dates: start: 20250423
  3. LETROZOLE [Concomitant]
     Active Substance: LETROZOLE
     Indication: Product used for unknown indication
     Route: 065
     Dates: start: 202409

REACTIONS (13)
  - Hepatotoxicity [Recovered/Resolved]
  - Dehydration [Recovered/Resolved]
  - Neutropenia [Recovered/Resolved]
  - Glomerular filtration rate decreased [Recovered/Resolved]
  - Leukopenia [Recovered/Resolved]
  - Thrombocytopenia [Recovered/Resolved]
  - Diarrhoea [Recovered/Resolved]
  - Vomiting [Recovered/Resolved]
  - Nausea [Recovered/Resolved]
  - Blood creatinine increased [Recovered/Resolved]
  - Fatigue [Recovered/Resolved]
  - Decreased appetite [Recovered/Resolved]
  - Dysgeusia [Recovered/Resolved]

NARRATIVE: CASE EVENT DATE: 20250206
